FAERS Safety Report 5504743-8 (Version None)
Quarter: 2007Q4

REPORT INFORMATION
  Report Type: 
  Country: None (occurrence: None)
  Receive Date: 20071031
  Receipt Date: 20071017
  Transmission Date: 20080405
  Serious: Yes (Life-Threatening)
  Sender: FDA-Public Use
  Company Number: POMP-11168

PATIENT
  Age: 1 Year
  Sex: Male
  Weight: 12.5 kg

DRUGS (7)
  1. MYOZYME [Suspect]
     Indication: GLYCOGEN STORAGE DISEASE TYPE II
     Dosage: 20 MG/KG Q2WKS IV
     Route: 042
     Dates: start: 20070111, end: 20070827
  2. MYOZYME [Suspect]
     Indication: GLYCOGEN STORAGE DISEASE TYPE II
     Dosage: 40 MG/KG Q2WKS IV
     Route: 042
     Dates: start: 20060827, end: 20070111
  3. MYOZYME [Suspect]
     Indication: GLYCOGEN STORAGE DISEASE TYPE II
     Dosage: 20 MG/KG Q2WKS IV
     Route: 042
     Dates: start: 20060420, end: 20060827
  4. MYOZYME [Suspect]
     Indication: GLYCOGEN STORAGE DISEASE TYPE II
     Dosage: 20 MG/KG QWK IV
     Route: 042
     Dates: start: 20060310, end: 20060401
  5. ACTOCORTINA [Concomitant]
  6. SPIRONOLACTONE [Concomitant]
  7. CARVEDILOL [Concomitant]

REACTIONS (10)
  - ANAPHYLACTIC REACTION [None]
  - BRONCHOSPASM [None]
  - HYPERHIDROSIS [None]
  - INFUSION RELATED REACTION [None]
  - LIP OEDEMA [None]
  - PHARYNGEAL OEDEMA [None]
  - RESPIRATORY ARREST [None]
  - STRIDOR [None]
  - TACHYCARDIA [None]
  - URTICARIA [None]
